FAERS Safety Report 15139883 (Version 3)
Quarter: 2018Q4

REPORT INFORMATION
  Report Type: Spontaneous
  Country: US (occurrence: US)
  Receive Date: 20180713
  Receipt Date: 20181203
  Transmission Date: 20190204
  Serious: No
  Sender: FDA-Public Use
  Company Number: US-SA-2018SA182694

PATIENT
  Sex: Male

DRUGS (2)
  1. PREDNISONE [PREDNISONE ACETATE] [Concomitant]
  2. DUPIXENT [Suspect]
     Active Substance: DUPILUMAB
     Indication: DERMATITIS ATOPIC
     Dosage: 300 MG, QOW
     Route: 058
     Dates: start: 20180522

REACTIONS (2)
  - Rash [Unknown]
  - Blood glucose abnormal [Unknown]
